FAERS Safety Report 6547251-8 (Version None)
Quarter: 2010Q1

REPORT INFORMATION
  Report Type: 
  Country: None (occurrence: None)
  Receive Date: 20100122
  Receipt Date: 20081229
  Transmission Date: 20100710
  Serious: No
  Sender: FDA-Public Use
  Company Number: US-BAUSCH-2008BL005384

PATIENT
  Age: 74 Year
  Sex: Female
  Weight: 81 kg

DRUGS (3)
  1. ZYLET [Suspect]
     Indication: CHALAZION
     Route: 047
     Dates: start: 20080926, end: 20081226
  2. SPIRONOLACTONE [Concomitant]
     Indication: HYPERTENSION
     Route: 048
     Dates: start: 20080101
  3. LASIX [Concomitant]
     Indication: HYPERTENSION
     Route: 048
     Dates: start: 20081101

REACTIONS (4)
  - EYE PRURITUS [None]
  - EYELID PTOSIS [None]
  - LACRIMATION INCREASED [None]
  - OCULAR HYPERAEMIA [None]
